FAERS Safety Report 25706777 (Version 2)
Quarter: 2025Q4

REPORT INFORMATION
  Report Type: Spontaneous
  Country: CA (occurrence: CA)
  Receive Date: 20250820
  Receipt Date: 20251118
  Transmission Date: 20260118
  Serious: No
  Sender: SANOFI AVENTIS
  Company Number: CA-SA-2025SA245046

PATIENT
  Age: 14 Year
  Sex: Female

DRUGS (1)
  1. CEREZYME [Suspect]
     Active Substance: IMIGLUCERASE
     Indication: Gaucher^s disease type III
     Dosage: 1600 U, QW
     Route: 042

REACTIONS (2)
  - Off label use [Unknown]
  - Product storage error [Unknown]
